FAERS Safety Report 11777847 (Version 1)
Quarter: 2015Q4

REPORT INFORMATION
  Report Type: Spontaneous
  Country: US (occurrence: US)
  Receive Date: 20151125
  Receipt Date: 20151125
  Transmission Date: 20160304
  Serious: Yes (Death)
  Sender: FDA-Public Use
  Company Number: US-THE MEDICINES COMPANY-US-MDCO-15-00307

PATIENT
  Age: 74 Year
  Sex: Female

DRUGS (6)
  1. ANGIOMAX [Suspect]
     Active Substance: BIVALIRUDIN
     Route: 040
  2. PROTAMINE [Concomitant]
     Active Substance: PROTAMINE
     Indication: PRODUCT USED FOR UNKNOWN INDICATION
     Dosage: NOT REPORTED
  3. ANGIOMAX [Suspect]
     Active Substance: BIVALIRUDIN
     Dosage: 25.1 ML/HR
     Route: 041
  4. ANGIOMAX [Suspect]
     Active Substance: BIVALIRUDIN
     Route: 040
  5. HEPARIN [Suspect]
     Active Substance: HEPARIN SODIUM
     Indication: PERCUTANEOUS CORONARY INTERVENTION
     Route: 042
  6. ANGIOMAX [Suspect]
     Active Substance: BIVALIRUDIN
     Indication: PERCUTANEOUS CORONARY INTERVENTION
     Route: 040

REACTIONS (3)
  - Coagulation time abnormal [Recovered/Resolved]
  - Coronary artery thrombosis [Fatal]
  - Overdose [Unknown]

NARRATIVE: CASE EVENT DATE: 20150529
